FAERS Safety Report 26062714 (Version 1)
Quarter: 2025Q4

REPORT INFORMATION
  Report Type: Spontaneous
  Country: US (occurrence: US)
  Receive Date: 20251119
  Receipt Date: 20251119
  Transmission Date: 20260118
  Serious: No
  Sender: INNOGENIX, LLC
  Company Number: US-Innogenix, LLC-2188859

PATIENT

DRUGS (1)
  1. LABETALOL HYDROCHLORIDE [Suspect]
     Active Substance: LABETALOL HYDROCHLORIDE
     Indication: Product used for unknown indication

REACTIONS (2)
  - Somnolence [Unknown]
  - Headache [Unknown]
